FAERS Safety Report 8192152-5 (Version None)
Quarter: 2012Q1

REPORT INFORMATION
  Report Type: 
  Country: None (occurrence: None)
  Receive Date: 20120307
  Receipt Date: 20120227
  Transmission Date: 20120608
  Serious: Yes (Hospitalization, Other)
  Sender: FDA-Public Use
  Company Number: US-RB-034229-11

PATIENT
  Sex: Female

DRUGS (4)
  1. SUBUTEX [Suspect]
     Route: 060
     Dates: start: 20110912
  2. SUBUTEX [Suspect]
     Indication: DRUG DEPENDENCE
     Route: 065
  3. CELEXA [Concomitant]
  4. ZOFRAN [Concomitant]

REACTIONS (4)
  - MATERNAL EXPOSURE DURING PREGNANCY [None]
  - NAUSEA [None]
  - PREMATURE DELIVERY [None]
  - CERVICAL INCOMPETENCE [None]
